FAERS Safety Report 8418966 (Version 7)
Quarter: 2012Q4

REPORT INFORMATION
  Report Type: 
  Country: US (occurrence: US)
  Receive Date: 20120221
  Receipt Date: 20121218
  Transmission Date: 20130627
  Serious: Yes (Hospitalization, Disabling, Other)
  Sender: FDA-Public Use
  Company Number: US-009507513-1202USA02805

PATIENT

DRUGS (3)
  1. FOSAMAX [Suspect]
     Indication: OSTEOPOROSIS
     Dosage: 70 mg, UNK
     Route: 048
     Dates: start: 20030102, end: 20060204
  2. FOSAMAX [Suspect]
     Indication: OSTEOPENIA
  3. FOSAMAX PLUS D [Suspect]
     Indication: OSTEOPOROSIS
     Dosage: 70 mg, UNK
     Route: 048
     Dates: start: 20070208

REACTIONS (22)
  - Intramedullary rod insertion [Recovered/Resolved]
  - Femur fracture [Unknown]
  - Femur fracture [Recovered/Resolved]
  - Ligament sprain [Unknown]
  - Lumbar radiculopathy [Not Recovered/Not Resolved]
  - Radiculitis lumbosacral [Not Recovered/Not Resolved]
  - Scoliosis [Unknown]
  - Low turnover osteopathy [Unknown]
  - Intervertebral disc protrusion [Unknown]
  - Intervertebral disc protrusion [Unknown]
  - Intervertebral disc space narrowing [Unknown]
  - Uterine polyp [Unknown]
  - Abdominal discomfort [Unknown]
  - Tooth disorder [Unknown]
  - Intramedullary rod insertion [Unknown]
  - Breast cyst [Unknown]
  - Vitamin D decreased [Unknown]
  - Urinary incontinence [Not Recovered/Not Resolved]
  - Chest pain [Unknown]
  - Dyspnoea [Unknown]
  - Cardiac stress test abnormal [Unknown]
  - Back pain [Unknown]
